FAERS Safety Report 4386895-9 (Version None)
Quarter: 2004Q2

REPORT INFORMATION
  Report Type: 
  Country: None (occurrence: None)
  Receive Date: 20040625
  Receipt Date: 20040618
  Transmission Date: 20050107
  Serious: Yes (Hospitalization)
  Sender: FDA-Public Use
  Company Number: 200411988GDS

PATIENT
  Age: 78 Year
  Sex: Female

DRUGS (7)
  1. ASPIRIN [Suspect]
     Dosage: 100 MG, TOTAL DAILY, ORAL
     Route: 048
     Dates: end: 20040405
  2. MARCUMAR [Suspect]
     Dosage: PRN, ORAL
     Route: 048
     Dates: end: 20040321
  3. CORDARONE [Concomitant]
  4. TRAMAL [Concomitant]
  5. LITALIR [Concomitant]
  6. MAGNESIUM DIASPORAL [Concomitant]
  7. NEXIUM [Concomitant]

REACTIONS (16)
  - ANAEMIA [None]
  - ATRIAL HYPERTROPHY [None]
  - CACHEXIA [None]
  - DRUG INTERACTION [None]
  - DYSPNOEA EXACERBATED [None]
  - GENERAL PHYSICAL HEALTH DETERIORATION [None]
  - HAEMORRHAGE [None]
  - INFLAMMATION [None]
  - PERICARDIAL EFFUSION [None]
  - PERICARDIAL HAEMORRHAGE [None]
  - PROCEDURAL SITE REACTION [None]
  - PROTHROMBIN TIME PROLONGED [None]
  - RALES [None]
  - RESPIRATION ABNORMAL [None]
  - THROMBOCYTHAEMIA [None]
  - VENTRICULAR HYPERTROPHY [None]
